FAERS Safety Report 5708960-3 (Version None)
Quarter: 2008Q2

REPORT INFORMATION
  Report Type: 
  Country: None (occurrence: None)
  Receive Date: 20080414
  Receipt Date: 20080414
  Transmission Date: 20081010
  Serious: Yes (Hospitalization)
  Sender: FDA-Public Use
  Company Number: None

PATIENT
  Age: 61 Year
  Sex: Female
  Weight: 26.7622 kg

DRUGS (6)
  1. INDOMETHACIN [Suspect]
     Indication: TENDONITIS
     Dosage: 75MG DAILY PO
     Route: 048
  2. SIMVASTATIN [Concomitant]
  3. VICODIN [Concomitant]
  4. TOPROL-XL [Concomitant]
  5. LISINOPRIL AND HYDROCHLOROTHIAZIDE [Concomitant]
  6. FOSAMAX [Concomitant]

REACTIONS (6)
  - DIZZINESS [None]
  - FAECES DISCOLOURED [None]
  - FATIGUE [None]
  - FREQUENT BOWEL MOVEMENTS [None]
  - HAEMATOCRIT DECREASED [None]
  - HAEMOGLOBIN DECREASED [None]
